FAERS Safety Report 7277434-3 (Version None)
Quarter: 2011Q1

REPORT INFORMATION
  Report Type: 
  Country: None (occurrence: None)
  Receive Date: 20110207
  Receipt Date: 20110127
  Transmission Date: 20110831
  Serious: Yes (Death)
  Sender: FDA-Public Use
  Company Number: JP-NOVOPROD-322360

PATIENT
  Sex: Female
  Weight: 47 kg

DRUGS (9)
  1. NOVOSEVEN [Suspect]
     Indication: HAEMORRHAGE
     Dosage: 4.8 MG, TID
     Route: 042
     Dates: start: 20090409
  2. PREDNISOLONE [Concomitant]
     Dosage: 45 MG, QD
     Route: 048
     Dates: start: 20090407, end: 20090823
  3. NOVOSEVEN [Suspect]
     Dosage: 4.8 MG, TID
     Route: 042
     Dates: start: 20090425
  4. BAKTAR [Concomitant]
     Dosage: 1 TAB, QD
     Route: 048
     Dates: start: 20090407, end: 20090823
  5. VFEND [Concomitant]
     Dosage: 250 MG, QD
     Route: 048
     Dates: start: 20090407, end: 20090823
  6. NOVOSEVEN [Suspect]
     Dosage: 4.8 MG, TID
     Route: 042
     Dates: start: 20090422
  7. NOVOSEVEN [Suspect]
     Dosage: 4.8 MG, TID
     Route: 042
     Dates: start: 20090427
  8. ZANTAC [Concomitant]
     Dosage: 150 MG, QD
     Route: 048
     Dates: start: 20090407, end: 20090823
  9. ENDOXAN                            /00021101/ [Concomitant]
     Dosage: 50 MG, QD
     Route: 048
     Dates: start: 20090421

REACTIONS (1)
  - PNEUMONIA [None]
